FAERS Safety Report 8830136 (Version 1)
Quarter: 2012Q4

REPORT INFORMATION
  Report Type: Spontaneous
  Country: US (occurrence: None)
  Receive Date: 20121005
  Receipt Date: 20121005
  Transmission Date: 20130627
  Serious: Yes (Hospitalization)
  Sender: FDA-Public Use
  Company Number: None

PATIENT
  Sex: Male
  Weight: 106.8 kg

DRUGS (16)
  1. ARMODAFINIL [Suspect]
     Indication: FATIGUE
     Dosage: 3 tablets Q AM PO
     Route: 048
     Dates: start: 20120712, end: 20120919
  2. CARBIDOPA-LEVODOPA [Concomitant]
  3. METOPROLOL [Concomitant]
  4. METFORMIN [Concomitant]
  5. TRADJENTA [Concomitant]
  6. LESCOL [Concomitant]
  7. GLIPIZIDE [Concomitant]
  8. SYNTHROID [Concomitant]
  9. PANTOPROZOLE [Concomitant]
  10. ZETIA [Concomitant]
  11. DAPSONE [Concomitant]
  12. RAMIPRIL [Concomitant]
  13. FUROSEMIDE [Concomitant]
  14. ASA [Concomitant]
  15. VITAMIN D3 [Concomitant]
  16. FISH OIL [Concomitant]

REACTIONS (7)
  - Peripheral artery aneurysm [None]
  - Epistaxis [None]
  - Cardiac arrest [None]
  - Bundle branch block right [None]
  - Acute coronary syndrome [None]
  - Ventricular fibrillation [None]
  - Ventricular tachycardia [None]
